FAERS Safety Report 5912274-6 (Version None)
Quarter: 2008Q4

REPORT INFORMATION
  Report Type: 
  Country: None (occurrence: None)
  Receive Date: 20081008
  Receipt Date: 20081001
  Transmission Date: 20090506
  Serious: Yes (Other)
  Sender: FDA-Public Use
  Company Number: D0058906A

PATIENT
  Age: 45 Year
  Sex: Female
  Weight: 65 kg

DRUGS (4)
  1. LAMICTAL [Suspect]
     Dosage: 150MG SINGLE DOSE
     Route: 048
  2. DISTRANEURIN [Suspect]
     Dosage: 6CAP SINGLE DOSE
     Route: 048
  3. FLUVOXAMINE MALEATE [Suspect]
     Dosage: 6MG SINGLE DOSE
     Route: 065
  4. STILNOX [Suspect]
     Route: 065

REACTIONS (1)
  - DRUG ABUSE [None]
